FAERS Safety Report 6018993-8 (Version None)
Quarter: 2008Q4

REPORT INFORMATION
  Report Type: 
  Country: None (occurrence: None)
  Receive Date: 20081224
  Receipt Date: 20081222
  Transmission Date: 20090506
  Serious: Yes (Hospitalization)
  Sender: FDA-Public Use
  Company Number: AU-BRISTOL-MYERS SQUIBB COMPANY-14401277

PATIENT
  Age: 99 Year
  Sex: Male
  Weight: 103 kg

DRUGS (7)
  1. CARBOPLATIN [Suspect]
     Route: 042
  2. ETOPOSIDE [Suspect]
     Dosage: FORM = INJ
     Route: 042
  3. HOLOXAN [Suspect]
     Indication: HODGKIN'S DISEASE
     Dosage: FORM = INJ
     Route: 042
     Dates: start: 20060731, end: 20060802
  4. MESNA [Suspect]
     Dosage: FORM = INJ
     Route: 042
  5. DIFLUCAN [Suspect]
  6. BACTRIM DS [Suspect]
     Dosage: FORM = TABS
     Route: 048
  7. AVANZA [Suspect]
     Dosage: FORM = TABS
     Route: 048

REACTIONS (3)
  - ABNORMAL BEHAVIOUR [None]
  - ENCEPHALOPATHY [None]
  - RENAL FAILURE ACUTE [None]
